FAERS Safety Report 25041524 (Version 1)
Quarter: 2025Q1

REPORT INFORMATION
  Report Type: Spontaneous
  Country: IN (occurrence: IN)
  Receive Date: 20250305
  Receipt Date: 20250305
  Transmission Date: 20250409
  Serious: Yes (Hospitalization)
  Sender: MYLAN
  Company Number: IN-MYLANLABS-2025M1018354

PATIENT
  Age: 6 Decade
  Sex: Female

DRUGS (3)
  1. OXALIPLATIN [Suspect]
     Active Substance: OXALIPLATIN
     Indication: Small intestine adenocarcinoma
  2. FLUOROURACIL [Suspect]
     Active Substance: FLUOROURACIL
     Indication: Small intestine adenocarcinoma
  3. LEUCOVORIN [Suspect]
     Active Substance: LEUCOVORIN\LEUCOVORIN CALCIUM
     Indication: Small intestine adenocarcinoma

REACTIONS (12)
  - Diarrhoea [Recovering/Resolving]
  - Hypokalaemia [Recovered/Resolved]
  - Hypocalcaemia [Recovering/Resolving]
  - Hypomagnesaemia [Recovering/Resolving]
  - Myelosuppression [Recovering/Resolving]
  - Pancytopenia [Recovered/Resolved]
  - Leukopenia [Recovering/Resolving]
  - Thrombocytopenia [Recovering/Resolving]
  - Metabolic acidosis [Recovering/Resolving]
  - Metabolic alkalosis [Recovering/Resolving]
  - Cough [Recovering/Resolving]
  - Dehydration [Recovering/Resolving]
